FAERS Safety Report 9665659 (Version 3)
Quarter: 2013Q4

REPORT INFORMATION
  Report Type: Spontaneous
  Country: FR (occurrence: FR)
  Receive Date: 20131104
  Receipt Date: 20131202
  Transmission Date: 20140711
  Serious: Yes (Other)
  Sender: FDA-Public Use
  Company Number: PHHY2013FR034527

PATIENT
  Sex: Female

DRUGS (3)
  1. EXJADE [Suspect]
     Indication: HAEMOLYTIC ANAEMIA
     Dosage: 625 MG, QD
     Route: 048
     Dates: start: 20070410, end: 20100201
  2. EXJADE [Suspect]
     Dosage: 1000 MG, QD
     Route: 048
     Dates: start: 20100201, end: 20100728
  3. SPECIAFOLDINE [Concomitant]
     Indication: HAEMOLYSIS
     Dosage: 5 MG, QD (DURING 10 DAYS MONTHLY)
     Route: 048
     Dates: start: 1980

REACTIONS (4)
  - Bone marrow disorder [Unknown]
  - Arthralgia [Recovering/Resolving]
  - Joint effusion [Unknown]
  - Arthropathy [Unknown]
